FAERS Safety Report 18605801 (Version 2)
Quarter: 2022Q1

REPORT INFORMATION
  Report Type: Spontaneous
  Country: US (occurrence: US)
  Receive Date: 20201211
  Receipt Date: 20220131
  Transmission Date: 20220423
  Serious: Yes (Other)
  Sender: FDA-Public Use
  Company Number: US-GLAXOSMITHKLINE-US2020GSK243994

PATIENT
  Sex: Female

DRUGS (2)
  1. ZANTAC [Suspect]
     Active Substance: RANITIDINE HYDROCHLORIDE
     Indication: Product used for unknown indication
     Dosage: UNK
     Route: 065
  2. ZANTAC [Suspect]
     Active Substance: RANITIDINE HYDROCHLORIDE
     Indication: Dyspepsia
     Dosage: 150 MG, TID
     Route: 065
     Dates: start: 2000, end: 2017

REACTIONS (7)
  - Neoplasm malignant [Unknown]
  - Colorectal cancer [Unknown]
  - Colon cancer [Unknown]
  - Adenocarcinoma of colon [Unknown]
  - Intestinal mass [Unknown]
  - Colon adenoma [Unknown]
  - Mucosal ulceration [Unknown]

NARRATIVE: CASE EVENT DATE: 20170101
